FAERS Safety Report 20141591 (Version 1)
Quarter: 2022Q1

REPORT INFORMATION
  Report Type: Spontaneous
  Country: US (occurrence: None)
  Receive Date: 20211202
  Receipt Date: 20211202
  Transmission Date: 20220423
  Serious: Yes (Other)
  Sender: FDA-Public Use
  Company Number: None

PATIENT
  Age: 46 Year
  Sex: Female

DRUGS (1)
  1. ZICAM COLD REMEDY [Suspect]
     Active Substance: HOMEOPATHICS\ZINC ACETATE\ZINC GLUCONATE
     Indication: Mineral supplementation
     Dates: start: 20211201, end: 20211201

REACTIONS (5)
  - Sneezing [None]
  - Gingival discomfort [None]
  - Gingival discomfort [None]
  - Oropharyngeal pain [None]
  - Chills [None]

NARRATIVE: CASE EVENT DATE: 20211201
